FAERS Safety Report 8731598 (Version 3)
Quarter: 2012Q4

REPORT INFORMATION
  Report Type: 
  Country: US (occurrence: US)
  Receive Date: 20120820
  Receipt Date: 20121008
  Transmission Date: 20130627
  Serious: Yes (Other)
  Sender: FDA-Public Use
  Company Number: US-BAYER-2012-084142

PATIENT
  Age: 67 Year
  Sex: Female
  Weight: 63.49 kg

DRUGS (7)
  1. BAYER ADVANCED ASPIRIN EXTRA STRENGTH [Suspect]
     Indication: HEADACHE
     Dosage: 1 TAB, UNK
     Route: 048
     Dates: start: 20120811, end: 20120811
  2. DIOVAN [Concomitant]
  3. VITAMIN C [Concomitant]
  4. SOLGAR FORMULA VM-75 [Concomitant]
  5. VITAMIN B12 [Concomitant]
  6. VITAMIN D [Concomitant]
  7. CALCIUM [Concomitant]

REACTIONS (3)
  - Burn oesophageal [Not Recovered/Not Resolved]
  - Pain [Not Recovered/Not Resolved]
  - Dyspepsia [Not Recovered/Not Resolved]
